FAERS Safety Report 7638016-4 (Version None)
Quarter: 2011Q3

REPORT INFORMATION
  Report Type: 
  Country: None (occurrence: None)
  Receive Date: 20110720
  Receipt Date: 20110526
  Transmission Date: 20111222
  Serious: Yes (Other)
  Sender: FDA-Public Use
  Company Number: JP-2011-1020

PATIENT
  Age: 61 Year
  Sex: Male

DRUGS (12)
  1. ROCALTROL [Concomitant]
  2. CARVEDILOL [Concomitant]
  3. KALIMATE [Concomitant]
  4. TICLOPIDINE HCL [Concomitant]
  5. ALDOMET [Concomitant]
  6. GLAKAY [Concomitant]
  7. NAVELBINE [Suspect]
     Indication: LUNG NEOPLASM MALIGNANT
     Dosage: 20 MG/M2, IV
     Route: 042
     Dates: start: 20110414
  8. TARCEVA [Concomitant]
  9. SEVELAMER HYDROCHLORIDE [Concomitant]
  10. CANDESARTAN CILEXETIL [Concomitant]
  11. RABEPRAZOLE SODIUM [Concomitant]
  12. CALCIUM LACTATE [Concomitant]

REACTIONS (4)
  - PLEURAL EFFUSION [None]
  - METASTASES TO BONE [None]
  - HAEMODIALYSIS [None]
  - HYPERSENSITIVITY [None]
